FAERS Safety Report 7808887-7 (Version None)
Quarter: 2011Q4

REPORT INFORMATION
  Report Type: 
  Country: None (occurrence: None)
  Receive Date: 20111012
  Receipt Date: 20111012
  Transmission Date: 20120403
  Serious: Yes (Other)
  Sender: FDA-Public Use
  Company Number: PHHO2008US05561

PATIENT
  Sex: Female
  Weight: 61.4 kg

DRUGS (1)
  1. GILENYA [Suspect]
     Indication: RELAPSING-REMITTING MULTIPLE SCLEROSIS
     Dosage: 1.25 MG, UNK
     Route: 048
     Dates: start: 20071031, end: 20080426

REACTIONS (5)
  - MACULAR OEDEMA [None]
  - RETINAL EXUDATES [None]
  - VISUAL IMPAIRMENT [None]
  - RETINAL ANEURYSM [None]
  - RETINAL HAEMORRHAGE [None]
